FAERS Safety Report 16513538 (Version 1)
Quarter: 2019Q3

REPORT INFORMATION
  Report Type: Report from Study
  Country: US (occurrence: US)
  Receive Date: 20190701
  Receipt Date: 20190701
  Transmission Date: 20191004
  Serious: Yes (Death, Other)
  Sender: FDA-Public Use
  Company Number: US-ACTELION-A-NJ2018-178927

PATIENT
  Age: 87 Year
  Sex: Male
  Weight: 68.93 kg

DRUGS (12)
  1. OXYGEN. [Concomitant]
     Active Substance: OXYGEN
  2. POTASSIUM CHLORIDE. [Concomitant]
     Active Substance: POTASSIUM CHLORIDE
     Dosage: 20 MEQ, BID
     Dates: start: 20160118
  3. ASA [Concomitant]
     Active Substance: ASPIRIN
     Dosage: 81 MG, QD
  4. LEVOTHYROXINE. [Concomitant]
     Active Substance: LEVOTHYROXINE
     Dosage: 75 MCG, QD
     Dates: start: 20180108
  5. TYVASO [Suspect]
     Active Substance: TREPROSTINIL
     Dosage: UNK, BREATHS/MIN, QID
     Route: 055
  6. FUROSEMIDE. [Suspect]
     Active Substance: FUROSEMIDE
     Indication: PRODUCT USED FOR UNKNOWN INDICATION
     Dosage: 40 MG, BID
     Route: 065
     Dates: start: 20171022
  7. TYVASO [Suspect]
     Active Substance: TREPROSTINIL
     Indication: PULMONARY ARTERIAL HYPERTENSION
     Dosage: 9-12 BREATHS/MIN, QID
     Route: 055
     Dates: start: 20170814
  8. REVATIO [Suspect]
     Active Substance: SILDENAFIL CITRATE
     Indication: PULMONARY ARTERIAL HYPERTENSION
     Dosage: 20 MG 3 TABS, TID
     Route: 065
     Dates: start: 20170517
  9. WARFARIN [Suspect]
     Active Substance: WARFARIN
     Indication: PRODUCT USED FOR UNKNOWN INDICATION
     Dosage: 2.5 MG, 2 TABS, QD, 3 X WEEK
     Route: 065
  10. MVI [Concomitant]
     Active Substance: VITAMINS
     Dosage: 1 CAP, QD
     Dates: start: 20140909
  11. OPSUMIT [Suspect]
     Active Substance: MACITENTAN
     Indication: PULMONARY ARTERIAL HYPERTENSION
     Dosage: 10 MG, QD
     Route: 048
     Dates: start: 20160630
  12. CRESTOR [Concomitant]
     Active Substance: ROSUVASTATIN CALCIUM
     Dosage: 10 MG, UNK
     Dates: start: 20140909

REACTIONS (12)
  - Micturition urgency [Unknown]
  - Death [Fatal]
  - Oxygen saturation decreased [Recovering/Resolving]
  - Condition aggravated [Unknown]
  - Anxiety [Unknown]
  - Loss of consciousness [Unknown]
  - Ear discomfort [Unknown]
  - Hypoxia [Recovering/Resolving]
  - Dyspnoea exertional [Recovering/Resolving]
  - Feeling abnormal [Unknown]
  - Syncope [Unknown]
  - Tinnitus [Unknown]

NARRATIVE: CASE EVENT DATE: 201808
